FAERS Safety Report 7377846-3 (Version None)
Quarter: 2011Q1

REPORT INFORMATION
  Report Type: 
  Country: None (occurrence: None)
  Receive Date: 20110328
  Receipt Date: 20110321
  Transmission Date: 20110831
  Serious: Yes (Death, Hospitalization)
  Sender: FDA-Public Use
  Company Number: US-CELGENEUS-163-21880-10121896

PATIENT
  Sex: Male

DRUGS (12)
  1. ACETAMINOPHEN [Concomitant]
     Dosage: 1000 MILLIGRAM
     Route: 048
  2. NITROGLYCERIN [Concomitant]
     Dosage: .4 MILLIGRAM
     Route: 060
  3. OMEPRAZOLE [Concomitant]
     Dosage: 20 MILLIGRAM
     Route: 048
  4. PREDNISONE [Concomitant]
     Dosage: 10 MILLIGRAM
     Route: 048
  5. DIAZEPAM [Concomitant]
     Dosage: 5 MILLIGRAM
     Route: 048
  6. FLUTICASONE-SALMETEROL [Concomitant]
     Dosage: 1000 MILLIGRAM
     Route: 065
  7. ASPIRIN [Concomitant]
     Dosage: 325 MILLIGRAM
     Route: 048
  8. REVLIMID [Suspect]
     Indication: MYELODYSPLASTIC SYNDROME
     Dosage: 10 MILLIGRAM
     Route: 048
     Dates: start: 20101214, end: 20110101
  9. ISOSORBIDE MONONITRATE [Concomitant]
     Dosage: 60 MILLIGRAM
     Route: 048
  10. TIOTROPIUM BROMIDE [Concomitant]
     Route: 065
  11. VITAMIN D [Concomitant]
     Dosage: 2,000UNITS
     Route: 048
  12. ALBUTEROL [Concomitant]
     Dosage: 2.5 MILLIGRAM
     Route: 065

REACTIONS (6)
  - PNEUMONIA [None]
  - ASTHENIA [None]
  - URINARY RETENTION [None]
  - DEMENTIA [None]
  - MYELODYSPLASTIC SYNDROME [None]
  - FALL [None]
